FAERS Safety Report 16618394 (Version 1)
Quarter: 2019Q3

REPORT INFORMATION
  Report Type: Spontaneous
  Country: US (occurrence: US)
  Receive Date: 20190723
  Receipt Date: 20190723
  Transmission Date: 20191004
  Serious: No
  Sender: FDA-Public Use
  Company Number: US-IMPAX LABORATORIES, LLC-2019-IPXL-00821

PATIENT
  Age: 48 Year
  Sex: Female

DRUGS (3)
  1. ADRENACLICK [Suspect]
     Active Substance: EPINEPHRINE
     Dosage: 0.3 MILLIGRAM, SINGLE
     Route: 065
     Dates: start: 20190329, end: 20190329
  2. LEVOTHYROXINE. [Concomitant]
     Active Substance: LEVOTHYROXINE
     Indication: THYROID DISORDER
     Dosage: 1 DOSAGE FORM, MORNING
     Route: 065
  3. ADRENACLICK [Suspect]
     Active Substance: EPINEPHRINE
     Indication: ANAPHYLACTIC SHOCK
     Dosage: 0.3 MILLIGRAM, SINGLE
     Route: 065
     Dates: start: 20190329, end: 20190329

REACTIONS (2)
  - Therapeutic response decreased [Unknown]
  - Injection site haemorrhage [Unknown]
